FAERS Safety Report 5835547-4 (Version None)
Quarter: 2008Q3

REPORT INFORMATION
  Report Type: 
  Country: None (occurrence: None)
  Receive Date: 20080806
  Receipt Date: 20080728
  Transmission Date: 20090109
  Serious: Yes (Other)
  Sender: FDA-Public Use
  Company Number: B0527877A

PATIENT
  Age: 57 Year
  Sex: Female
  Weight: 50 kg

DRUGS (2)
  1. TYVERB [Suspect]
     Dosage: 1250MG PER DAY
     Route: 048
     Dates: start: 20080529, end: 20080626
  2. XELODA [Suspect]
     Dosage: 2000MGM2 PER DAY
     Route: 048
     Dates: start: 20080529, end: 20080626

REACTIONS (1)
  - HEPATITIS CHOLESTATIC [None]
